FAERS Safety Report 25913783 (Version 1)
Quarter: 2025Q4

REPORT INFORMATION
  Report Type: Spontaneous
  Country: TH (occurrence: TH)
  Receive Date: 20251013
  Receipt Date: 20251013
  Transmission Date: 20260117
  Serious: Yes (Hospitalization, Other)
  Sender: NOVARTIS
  Company Number: TH-002147023-NVSC2025TH144690

PATIENT
  Age: 69 Year
  Sex: Male

DRUGS (6)
  1. KISQALI [Suspect]
     Active Substance: RIBOCICLIB SUCCINATE
     Indication: Metastases to liver
     Dosage: UNK
     Route: 055
  2. KISQALI [Suspect]
     Active Substance: RIBOCICLIB SUCCINATE
     Indication: Metastases to bone
  3. KISQALI [Suspect]
     Active Substance: RIBOCICLIB SUCCINATE
     Indication: Metastases to skin
  4. KISQALI [Suspect]
     Active Substance: RIBOCICLIB SUCCINATE
     Indication: Breast cancer recurrent
  5. LETROZOLE [Concomitant]
     Active Substance: LETROZOLE
     Indication: Breast cancer metastatic
     Dosage: UNK (CONTINUING TO PRESENT (10 MONTHS))
     Route: 065
     Dates: start: 20241106
  6. LEUPROLIDE [Concomitant]
     Active Substance: LEUPROLIDE
     Indication: Product used for unknown indication
     Dosage: UNK (CONTINUING TO PRESENT (10 MONTHS))
     Route: 065
     Dates: start: 20241106

REACTIONS (8)
  - Subdural haematoma [Unknown]
  - Neutropenia [Unknown]
  - Metastases to bone [Unknown]
  - Head injury [Unknown]
  - Haemoglobin decreased [Unknown]
  - Skin mass [Unknown]
  - Rash [Unknown]
  - Therapy non-responder [Unknown]

NARRATIVE: CASE EVENT DATE: 20250201
